FAERS Safety Report 6750373-X (Version None)
Quarter: 2010Q2

REPORT INFORMATION
  Report Type: 
  Country: None (occurrence: None)
  Receive Date: 20100527
  Receipt Date: 20100519
  Transmission Date: 20101027
  Serious: Yes (Hospitalization)
  Sender: FDA-Public Use
  Company Number: UTC-001103

PATIENT
  Age: 51 Year
  Sex: Male
  Weight: 90.7 kg

DRUGS (6)
  1. TYVASO [Suspect]
     Indication: PULMONARY ARTERIAL HYPERTENSION
     Dosage: INHALATION
     Route: 055
     Dates: start: 20091007
  2. ADCIRCA (TADALAFIL) [Concomitant]
  3. LASIX [Concomitant]
  4. DIGOXIN [Concomitant]
  5. VITAMIN D [Concomitant]
  6. TRACLEER [Concomitant]

REACTIONS (1)
  - FLUID RETENTION [None]
